FAERS Safety Report 8255742-7 (Version None)
Quarter: 2012Q2

REPORT INFORMATION
  Report Type: 
  Country: None (occurrence: None)
  Receive Date: 20120403
  Receipt Date: 20120322
  Transmission Date: 20120825
  Serious: Yes (Other)
  Sender: FDA-Public Use
  Company Number: FR-SANOFI-AVENTIS-2012SA020304

PATIENT
  Age: 68 Year
  Sex: Male
  Weight: 81.7 kg

DRUGS (6)
  1. PREDNISONE [Suspect]
     Route: 065
  2. CABAZITAXEL [Suspect]
     Indication: PROSTATE CANCER
     Route: 042
     Dates: start: 20120307, end: 20120307
  3. BLINDED THERAPY [Suspect]
     Indication: PROSTATE CANCER
     Route: 042
     Dates: start: 20120228, end: 20120228
  4. PREVISCAN [Suspect]
     Route: 065
  5. BLINDED THERAPY [Suspect]
     Route: 042
  6. PREDNISOLONE [Suspect]
     Route: 065

REACTIONS (1)
  - OESOPHAGEAL ULCER HAEMORRHAGE [None]
